FAERS Safety Report 25302316 (Version 1)
Quarter: 2025Q2

REPORT INFORMATION
  Report Type: Spontaneous
  Country: US (occurrence: None)
  Receive Date: 20250512
  Receipt Date: 20250512
  Transmission Date: 20250717
  Serious: Yes (unspecified)
  Sender: FDA-CTU
  Company Number: None

PATIENT
  Age: 76 Year
  Sex: Female
  Weight: 55.35 kg

DRUGS (18)
  1. CLINDAMYCIN HYDROCHLORIDE [Suspect]
     Active Substance: CLINDAMYCIN HYDROCHLORIDE
     Indication: Sinusitis bacterial
     Dosage: 1 TABLET TWICE A DAY ORAL
     Route: 048
     Dates: start: 20250108, end: 20250110
  2. air supra [Concomitant]
  3. AZELASTINE [Concomitant]
     Active Substance: AZELASTINE
  4. MIEBO [Concomitant]
     Active Substance: PERFLUOROHEXYLOCTANE
  5. LIVALO [Concomitant]
     Active Substance: PITAVASTATIN CALCIUM
  6. fleconaide [Concomitant]
  7. RESTASIS [Concomitant]
     Active Substance: CYCLOSPORINE
  8. PREMARIN [Suspect]
     Active Substance: ESTROGENS, CONJUGATED
  9. FAMOTIDINE [Concomitant]
     Active Substance: FAMOTIDINE
  10. LEFLUNOMIDE [Concomitant]
     Active Substance: LEFLUNOMIDE
  11. meethenamine hippurate [Concomitant]
  12. LIDOCAINE PATCH [Concomitant]
     Active Substance: LIDOCAINE
  13. gentteal [Concomitant]
  14. VITAMIN D3 [Concomitant]
     Active Substance: CHOLECALCIFEROL
  15. PROBIOTICS NOS [Concomitant]
     Active Substance: PROBIOTICS NOS
  16. TYLENOL [Concomitant]
     Active Substance: ACETAMINOPHEN
  17. certirizine, [Concomitant]
  18. FISH OIL [Concomitant]
     Active Substance: FISH OIL

REACTIONS (6)
  - Diarrhoea [None]
  - Haematemesis [None]
  - Product colour issue [None]
  - Reaction to azo-dyes [None]
  - Retching [None]
  - Therapy change [None]

NARRATIVE: CASE EVENT DATE: 20250110
